FAERS Safety Report 9257275 (Version 1)
Quarter: 2013Q2

REPORT INFORMATION
  Report Type: Spontaneous
  Country: TR (occurrence: TR)
  Receive Date: 20130426
  Receipt Date: 20130426
  Transmission Date: 20140414
  Serious: Yes (Death, Hospitalization)
  Sender: FDA-Public Use
  Company Number: PHHY2013TR039757

PATIENT
  Age: 45 Year
  Sex: Female

DRUGS (6)
  1. ZOLEDRONIC ACID [Suspect]
     Indication: HYPERCALCAEMIA OF MALIGNANCY
     Dosage: 3 MG, UNK
  2. ZOLEDRONIC ACID [Suspect]
     Dosage: UNK UKN, UNK
  3. CALCITONIN [Suspect]
     Dosage: 200 IU, BID
     Route: 058
  4. FUROSEMIDE [Concomitant]
     Dosage: 40 MG, UNK
     Route: 042
  5. METHYLPREDNISOLONE [Concomitant]
     Dosage: 80 MG, ONCE DAILY
  6. SALINE [Concomitant]
     Dosage: 200-300ML/HR
     Route: 042

REACTIONS (8)
  - Death [Fatal]
  - Cardio-respiratory arrest [Unknown]
  - Hyperventilation [Unknown]
  - General physical health deterioration [Unknown]
  - Sinus tachycardia [Unknown]
  - Tachypnoea [Unknown]
  - Hypercalcaemia [Unknown]
  - Blood pressure decreased [Unknown]
